FAERS Safety Report 5053430-1 (Version None)
Quarter: 2006Q2

REPORT INFORMATION
  Report Type: 
  Country: None (occurrence: None)
  Receive Date: 20060614
  Receipt Date: 20060405
  Transmission Date: 20061013
  Serious: Yes (Other)
  Sender: FDA-Public Use
  Company Number: 443556

PATIENT
  Age: 56 Year
  Sex: Female
  Weight: 64.4 kg

DRUGS (1)
  1. BONIVA [Suspect]
     Indication: OSTEOPOROSIS
     Dosage: ORAL
     Route: 048
     Dates: start: 20060401

REACTIONS (5)
  - ARTHRALGIA [None]
  - HIP SWELLING [None]
  - MYALGIA [None]
  - OEDEMA PERIPHERAL [None]
  - TENDERNESS [None]
